FAERS Safety Report 15004781 (Version 1)
Quarter: 2018Q2

REPORT INFORMATION
  Report Type: Report from Study
  Country: JP (occurrence: JP)
  Receive Date: 20180613
  Receipt Date: 20180613
  Transmission Date: 20180711
  Serious: Yes (Death)
  Sender: FDA-Public Use
  Company Number: PHHO1995JP03390

PATIENT
  Age: 50 Year
  Sex: Male

DRUGS (11)
  1. BETAMIPRON [Concomitant]
     Active Substance: BETAMIPRON
     Indication: INFECTION
     Dosage: UNK
     Route: 065
  2. LENOGRASTIM [Concomitant]
     Active Substance: LENOGRASTIM
     Indication: BONE MARROW TRANSPLANT
     Dosage: UNK
     Route: 065
  3. SANDIMMUNE [Suspect]
     Active Substance: CYCLOSPORINE
     Dosage: 420 MG, QD
     Route: 065
     Dates: start: 19950505, end: 19950516
  4. SANDIMMUNE [Suspect]
     Active Substance: CYCLOSPORINE
     Dosage: 250 MG, QD
     Route: 048
     Dates: start: 19950519, end: 19950522
  5. AZTREONAM. [Concomitant]
     Active Substance: AZTREONAM
     Indication: INFECTION
     Dosage: UNK
     Route: 065
  6. FLUCONAZOLE. [Concomitant]
     Active Substance: FLUCONAZOLE
     Indication: INFECTION
     Dosage: UNK
     Route: 065
  7. SANDIMMUNE [Suspect]
     Active Substance: CYCLOSPORINE
     Indication: PROPHYLAXIS AGAINST TRANSPLANT REJECTION
     Dosage: 700 MG, QD
     Route: 065
     Dates: start: 19950428, end: 19950504
  8. PANIPENEM [Concomitant]
     Active Substance: PANIPENEM
     Indication: INFECTION
     Dosage: UNK
     Route: 065
  9. ACICLOVIR [Concomitant]
     Active Substance: ACYCLOVIR
     Indication: INFECTION
     Dosage: UNK
     Route: 065
  10. SANDIMMUNE [Suspect]
     Active Substance: CYCLOSPORINE
     Indication: BONE MARROW TRANSPLANT
     Dosage: 700 MG, QD
     Route: 065
  11. SANDIMMUNE [Suspect]
     Active Substance: CYCLOSPORINE
     Dosage: 280 MG, QD
     Route: 065
     Dates: start: 19950517, end: 19950518

REACTIONS (2)
  - Renal impairment [Fatal]
  - Altered state of consciousness [Fatal]
